FAERS Safety Report 23601079 (Version 1)
Quarter: 2024Q1

REPORT INFORMATION
  Report Type: Spontaneous
  Country: US (occurrence: None)
  Receive Date: 20240305
  Receipt Date: 20240305
  Transmission Date: 20240409
  Serious: No
  Sender: FDA-Public Use
  Company Number: None

PATIENT
  Age: 46 Year
  Sex: Male

DRUGS (1)
  1. LENALIDOMIDE [Suspect]
     Active Substance: LENALIDOMIDE
     Indication: Myelodysplastic syndrome
     Dosage: 10MG QOD ORAL
     Route: 048
     Dates: start: 20230331

REACTIONS (2)
  - Nausea [None]
  - Drug intolerance [None]

NARRATIVE: CASE EVENT DATE: 20240213
